FAERS Safety Report 8808478 (Version 3)
Quarter: 2013Q1

REPORT INFORMATION
  Report Type: Spontaneous
  Country: US (occurrence: US)
  Receive Date: 20120926
  Receipt Date: 20130111
  Transmission Date: 20140127
  Serious: Yes (Hospitalization)
  Sender: FDA-Public Use
  Company Number: US-BAYER-2012-100021

PATIENT
  Age: 23 Year
  Sex: Female
  Weight: 85 kg

DRUGS (13)
  1. YAZ [Suspect]
     Indication: CONTRACEPTION
     Dosage: UNK
     Dates: start: 20070101, end: 20111212
  2. OCELLA [Suspect]
     Dosage: UNK
     Dates: start: 2007, end: 2011
  3. AZITHROMYCIN [Concomitant]
  4. FLAGYL [Concomitant]
  5. PREDNISONE [Concomitant]
     Dosage: UNK
     Dates: start: 20111209, end: 20111212
  6. LIALDA [Concomitant]
     Indication: COLITIS ULCERATIVE
     Dosage: UNK
     Dates: start: 2010
  7. ASACOL [Concomitant]
     Indication: COLITIS ULCERATIVE
     Dosage: UNK
     Dates: start: 2010
  8. REMADICE [Concomitant]
     Indication: COLITIS ULCERATIVE
     Dosage: UNK
     Dates: start: 2010
  9. MESALAMINE [Concomitant]
     Indication: COLITIS ULCERATIVE
     Dosage: UNK
     Dates: start: 2010
  10. DICLOFENAC SODIUM [Concomitant]
  11. REMICADE [Concomitant]
  12. ROWASA [Concomitant]
  13. PERCOCET [Concomitant]

REACTIONS (10)
  - Deep vein thrombosis [None]
  - Pulmonary embolism [None]
  - Thrombophlebitis superficial [None]
  - Pain [None]
  - Injury [None]
  - General physical health deterioration [None]
  - Pain [None]
  - Anxiety [None]
  - Anhedonia [None]
  - Emotional distress [None]
